FAERS Safety Report 7878489-5 (Version None)
Quarter: 2011Q4

REPORT INFORMATION
  Report Type: 
  Country: None (occurrence: None)
  Receive Date: 20111014
  Receipt Date: 20110824
  Transmission Date: 20120403
  Serious: Yes (Other)
  Sender: FDA-Public Use
  Company Number: 284246USA

PATIENT
  Age: 35 Year
  Sex: Female

DRUGS (1)
  1. FENTANYL CITRATE [Suspect]
     Dosage: (800 MCG), (1200 MCG)
     Dates: start: 20110526, end: 20110529

REACTIONS (11)
  - PAIN [None]
  - HYPERHIDROSIS [None]
  - NAUSEA [None]
  - MALAISE [None]
  - INFLUENZA LIKE ILLNESS [None]
  - LETHARGY [None]
  - CHILLS [None]
  - WITHDRAWAL SYNDROME [None]
  - INFLUENZA [None]
  - DRUG INEFFECTIVE [None]
  - TREMOR [None]
